FAERS Safety Report 6292200-3 (Version None)
Quarter: 2009Q3

REPORT INFORMATION
  Report Type: 
  Country: None (occurrence: None)
  Receive Date: 20090730
  Receipt Date: 20090730
  Transmission Date: 20100115
  Serious: Yes (Other)
  Sender: FDA-Public Use
  Company Number: None

PATIENT
  Age: 26 Year
  Sex: Female

DRUGS (2)
  1. NAROPIN [Suspect]
     Indication: LABOUR PAIN
     Dosage: 6 ML ONE TIME EPID
     Route: 008
     Dates: start: 20090726
  2. LIDOCAINE 1.5% W/ EPINEPHRINE 1:200,000 [Suspect]
     Dosage: 3ML

REACTIONS (1)
  - INADEQUATE ANALGESIA [None]
